FAERS Safety Report 7235034-5 (Version None)
Quarter: 2011Q1

REPORT INFORMATION
  Report Type: 
  Country: None (occurrence: None)
  Receive Date: 20110120
  Receipt Date: 20110113
  Transmission Date: 20110831
  Serious: Yes (Other)
  Sender: FDA-Public Use
  Company Number: US-ASTRAZENECA-2006UW01567

PATIENT
  Age: 17722 Day
  Sex: Male
  Weight: 135.6 kg

DRUGS (40)
  1. SEROQUEL [Suspect]
     Dosage: TOTAL DAILY DOSE 300 MG
     Route: 048
     Dates: start: 20040605, end: 20040810
  2. LASIX [Concomitant]
     Dates: start: 20040423
  3. LISINOPRIL [Concomitant]
     Dates: start: 20040423
  4. MINOXIDIL [Concomitant]
     Dates: start: 20040423
  5. SEROQUEL [Suspect]
     Dosage: 100 MG-600 MG
     Route: 048
     Dates: start: 20040423
  6. SEROQUEL [Suspect]
     Dosage: TOTAL DAILY DOSE 300 MG
     Route: 048
     Dates: start: 20040605, end: 20040810
  7. SEROQUEL [Suspect]
     Dosage: TOTAL DAILY DOSE 400 MG
     Route: 048
     Dates: start: 20040810, end: 20050531
  8. SEROQUEL [Suspect]
     Dosage: TOTAL DAILY DOSE 400 MG
     Route: 048
     Dates: start: 20040810, end: 20050531
  9. SEROQUEL [Suspect]
     Dosage: TOTAL DAILY DOSE 300 MG
     Route: 048
     Dates: start: 20050531, end: 20050729
  10. RISPERDAL [Concomitant]
     Dosage: TOTAL DAILY DOSE 2 MG
     Dates: start: 20050601
  11. SEROQUEL [Suspect]
     Dosage: 100 MG-600 MG
     Route: 048
     Dates: start: 20040423
  12. SEROQUEL [Suspect]
     Dosage: TOTAL DAILY DOSE 300 MG
     Route: 048
     Dates: start: 20040605, end: 20040810
  13. SEROQUEL [Suspect]
     Dosage: TOTAL DAILY DOSE 400 MG
     Route: 048
     Dates: start: 20040810, end: 20050531
  14. SEROQUEL [Suspect]
     Dosage: TOTAL DAILY DOSE 400 MG
     Route: 048
     Dates: start: 20050729
  15. PAXIL [Concomitant]
  16. COCAINE [Concomitant]
  17. ZOLOFT [Concomitant]
     Dosage: 50 MG-100 MG
     Dates: start: 20040423
  18. VIAGARA [Concomitant]
     Indication: ERECTILE DYSFUNCTION
     Dates: start: 20051128
  19. SEROQUEL [Suspect]
     Dosage: TOTAL DAILY DOSE 300 MG
     Route: 048
     Dates: start: 20050531, end: 20050729
  20. EFFEXOR [Concomitant]
  21. NORVASC [Concomitant]
     Dates: start: 20040423
  22. PREVACID [Concomitant]
     Dates: start: 20040423
  23. WELLBUTRIN [Concomitant]
     Dosage: 100 MG-200 MG
     Dates: start: 20050521
  24. THORAZINE [Concomitant]
  25. ZYPREXA [Concomitant]
     Dosage: TOTAL DAILY DOSE 15 MG
     Dates: start: 20050601
  26. PROZAC [Concomitant]
  27. SEROQUEL [Suspect]
     Dosage: TOTAL DAILY DOSE 400 MG
     Route: 048
     Dates: start: 20050729
  28. SEROQUEL [Suspect]
     Dosage: TOTAL DAILY DOSE 400 MG
     Route: 048
     Dates: start: 20050729
  29. HALDOL [Concomitant]
     Dates: start: 20060901
  30. HYDROCHLOROTHIAZIDE [Concomitant]
     Dates: start: 20050521
  31. SEROQUEL [Suspect]
     Indication: ANXIETY
     Dosage: 100 MG
     Route: 048
     Dates: start: 20040325, end: 20040605
  32. CELEXA [Concomitant]
  33. ASPIRIN [Concomitant]
     Dates: start: 20050531
  34. CLONIDINE [Concomitant]
     Dosage: 0.2 MG TO 0.8 MG
     Dates: start: 20051128
  35. SEROQUEL [Suspect]
     Indication: DEPRESSION
     Dosage: 100 MG
     Route: 048
     Dates: start: 20040325, end: 20040605
  36. SEROQUEL [Suspect]
     Indication: PSYCHOTIC DISORDER
     Dosage: 100 MG
     Route: 048
     Dates: start: 20040325, end: 20040605
  37. SEROQUEL [Suspect]
     Dosage: 100 MG-600 MG
     Route: 048
     Dates: start: 20040423
  38. SEROQUEL [Suspect]
     Dosage: TOTAL DAILY DOSE 300 MG
     Route: 048
     Dates: start: 20050531, end: 20050729
  39. MARIJUANA [Concomitant]
  40. CAPTOPRIL [Concomitant]
     Dosage: 50 MG-100 MG
     Route: 048
     Dates: start: 20050521

REACTIONS (7)
  - SUICIDAL IDEATION [None]
  - PALPITATIONS [None]
  - CHEST PAIN [None]
  - ERECTILE DYSFUNCTION [None]
  - ORGANIC ERECTILE DYSFUNCTION [None]
  - LOSS OF CONSCIOUSNESS [None]
  - TYPE 2 DIABETES MELLITUS [None]
